FAERS Safety Report 14477409 (Version 1)
Quarter: 2018Q1

REPORT INFORMATION
  Report Type: Report from Study
  Country: US (occurrence: US)
  Receive Date: 20180201
  Receipt Date: 20180201
  Transmission Date: 20180509
  Serious: No
  Sender: FDA-Public Use
  Company Number: US-EXELIXIS-CABO-17010932

PATIENT
  Sex: Male

DRUGS (17)
  1. NITROGLYCERIN. [Concomitant]
     Active Substance: NITROGLYCERIN
  2. CLOBETASOL [Concomitant]
     Active Substance: CLOBETASOL
  3. METOPROLOL. [Concomitant]
     Active Substance: METOPROLOL
  4. CIPRO [Concomitant]
     Active Substance: CIPROFLOXACIN HYDROCHLORIDE
  5. ACETAMIN [Concomitant]
     Active Substance: ACETAMINOPHEN
  6. TRAMADOL. [Concomitant]
     Active Substance: TRAMADOL
  7. CABOMETYX [Suspect]
     Active Substance: CABOZANTINIB S-MALATE
     Dosage: 40 MG, QD
     Route: 048
  8. ALPRAZOLAM. [Concomitant]
     Active Substance: ALPRAZOLAM
  9. SUTENT [Concomitant]
     Active Substance: SUNITINIB MALATE
  10. CABOMETYX [Suspect]
     Active Substance: CABOZANTINIB S-MALATE
     Indication: RENAL CANCER
     Dosage: 60 MG, QD
     Route: 048
     Dates: start: 20170628
  11. ACYCLOVIR. [Concomitant]
     Active Substance: ACYCLOVIR
  12. LISINOPRIL. [Concomitant]
     Active Substance: LISINOPRIL
  13. PRAVASTATIN. [Concomitant]
     Active Substance: PRAVASTATIN
  14. A-HYDROCORT [Concomitant]
     Active Substance: HYDROCORTISONE SODIUM SUCCINATE
  15. FLUTICASONE. [Concomitant]
     Active Substance: FLUTICASONE
  16. HYDROCODONE [Concomitant]
     Active Substance: HYDROCODONE
  17. INLYTA [Concomitant]
     Active Substance: AXITINIB

REACTIONS (1)
  - Nasopharyngitis [Unknown]
